FAERS Safety Report 17466838 (Version 1)
Quarter: 2020Q1

REPORT INFORMATION
  Report Type: Spontaneous
  Country: US (occurrence: US)
  Receive Date: 20200214
  Receipt Date: 20200214
  Transmission Date: 20200409
  Serious: Yes (Hospitalization)
  Sender: FDA-Public Use
  Company Number: None

PATIENT
  Sex: Male

DRUGS (8)
  1. AMLODIPINE [Concomitant]
     Active Substance: AMLODIPINE BESYLATE
  2. BENAZEPRIL [Concomitant]
     Active Substance: BENAZEPRIL HYDROCHLORIDE
  3. ENBREL [Suspect]
     Active Substance: ETANERCEPT
     Indication: RHEUMATOID ARTHRITIS
     Route: 058
     Dates: start: 20160810
  4. RANITIDINE. [Concomitant]
     Active Substance: RANITIDINE
  5. METHOTREXATE. [Concomitant]
     Active Substance: METHOTREXATE
  6. FAMOTIDINE. [Concomitant]
     Active Substance: FAMOTIDINE
  7. NAPROXEN. [Concomitant]
     Active Substance: NAPROXEN
  8. ATROVASTATIN [Concomitant]
     Active Substance: ATORVASTATIN CALCIUM

REACTIONS (1)
  - Cerebrovascular accident [None]
